FAERS Safety Report 15555190 (Version 1)
Quarter: 2018Q4

REPORT INFORMATION
  Report Type: Spontaneous
  Country: AU (occurrence: AU)
  Receive Date: 20181026
  Receipt Date: 20181026
  Transmission Date: 20190205
  Serious: Yes (Death, Other)
  Sender: FDA-Public Use
  Company Number: AU-GLAXOSMITHKLINE-AU2018GSK101232

PATIENT
  Sex: Male

DRUGS (1)
  1. TAFENOQUINE [Suspect]
     Active Substance: TAFENOQUINE
     Indication: PRODUCT USED FOR UNKNOWN INDICATION
     Dosage: 200 MG, 1D
     Dates: start: 200002

REACTIONS (25)
  - Mental impairment [Unknown]
  - Tinnitus [Not Recovered/Not Resolved]
  - Ill-defined disorder [Unknown]
  - Tremor [Unknown]
  - Hyperacusis [Unknown]
  - Condition aggravated [Unknown]
  - Restlessness [Unknown]
  - Depressed mood [Unknown]
  - Mood swings [Unknown]
  - Aggression [Unknown]
  - Social avoidant behaviour [Unknown]
  - Hyperhidrosis [Unknown]
  - Asthenia [Unknown]
  - Depression [Unknown]
  - Alcohol abuse [Unknown]
  - Sleep disorder [Unknown]
  - Memory impairment [Unknown]
  - Post-traumatic stress disorder [Not Recovered/Not Resolved]
  - Completed suicide [Fatal]
  - Loss of personal independence in daily activities [Unknown]
  - Photosensitivity reaction [Unknown]
  - Incoherent [Unknown]
  - Verbal abuse [Unknown]
  - Psychiatric symptom [Unknown]
  - Abnormal behaviour [Unknown]
